FAERS Safety Report 17561706 (Version 1)
Quarter: 2020Q1

REPORT INFORMATION
  Report Type: Spontaneous
  Country: US (occurrence: US)
  Receive Date: 20200319
  Receipt Date: 20200319
  Transmission Date: 20200409
  Serious: Yes (Hospitalization)
  Sender: FDA-Public Use
  Company Number: US-ADAMAS PHARMA, LLC-2020ADA00625

PATIENT
  Age: 77 Year
  Sex: Male

DRUGS (1)
  1. GOCOVRI [Suspect]
     Active Substance: AMANTADINE
     Dosage: UNK
     Dates: end: 202002

REACTIONS (6)
  - Fall [None]
  - Pyrexia [Not Recovered/Not Resolved]
  - Rhabdomyolysis [Unknown]
  - Leukocytosis [Unknown]
  - Hip fracture [Unknown]
  - Withdrawal syndrome [Unknown]

NARRATIVE: CASE EVENT DATE: 202002
